FAERS Safety Report 5213839-X (Version None)
Quarter: 2007Q1

REPORT INFORMATION
  Report Type: 
  Country: None (occurrence: None)
  Receive Date: 20070117
  Receipt Date: 20070103
  Transmission Date: 20070707
  Serious: Yes (Life-Threatening, Hospitalization)
  Sender: FDA-Public Use
  Company Number: 224672

PATIENT
  Age: 61 Year
  Sex: Female
  Weight: 93 kg

DRUGS (3)
  1. EFALIZUMAB(EFALIZUMAB) PWDR + SOLVENT,INFUSION SOLN, 125MG [Suspect]
     Indication: PSORIASIS
     Dosage: 1 MG, 1/WEEK, SUBCUTANEOUS
     Route: 058
     Dates: start: 20040426
  2. SYNTHROID [Concomitant]
  3. CYTOMEL [Concomitant]

REACTIONS (1)
  - PAPILLARY THYROID CANCER [None]
